FAERS Safety Report 14913917 (Version 2)
Quarter: 2018Q2

REPORT INFORMATION
  Report Type: Spontaneous
  Country: US (occurrence: US)
  Receive Date: 20180518
  Receipt Date: 20180525
  Transmission Date: 20180711
  Serious: Yes (Other)
  Sender: FDA-Public Use
  Company Number: US-SUNOVION-2018SUN001926

PATIENT
  Age: 61 Year
  Sex: Female
  Weight: 98.41 kg

DRUGS (3)
  1. LATUDA [Suspect]
     Active Substance: LURASIDONE HYDROCHLORIDE
     Dosage: 60 MG, QD
     Route: 048
  2. LATUDA [Suspect]
     Active Substance: LURASIDONE HYDROCHLORIDE
     Dosage: 40 MG, QD
     Route: 048
     Dates: start: 201804, end: 201804
  3. LATUDA [Suspect]
     Active Substance: LURASIDONE HYDROCHLORIDE
     Indication: BIPOLAR DISORDER
     Dosage: 20 MG, QD
     Route: 048
     Dates: start: 201803, end: 201804

REACTIONS (5)
  - Disturbance in attention [Unknown]
  - Suicidal ideation [Unknown]
  - Feeling abnormal [Unknown]
  - Agitation [Unknown]
  - Depressed mood [Unknown]

NARRATIVE: CASE EVENT DATE: 201804
